FAERS Safety Report 7241408-9 (Version None)
Quarter: 2011Q1

REPORT INFORMATION
  Report Type: 
  Country: None (occurrence: None)
  Receive Date: 20110124
  Receipt Date: 20110114
  Transmission Date: 20110831
  Serious: Yes (Hospitalization)
  Sender: FDA-Public Use
  Company Number: US-JNJFOC-20101101004

PATIENT
  Sex: Female
  Weight: 87.54 kg

DRUGS (2)
  1. LOVENOX [Suspect]
     Indication: THROMBOSIS
     Route: 058
  2. REMICADE [Suspect]
     Indication: PSORIATIC ARTHROPATHY
     Route: 042

REACTIONS (7)
  - THROMBOSIS [None]
  - DEHYDRATION [None]
  - TRANSIENT ISCHAEMIC ATTACK [None]
  - SEPSIS [None]
  - INCOHERENT [None]
  - INTRA-ABDOMINAL HAEMATOMA [None]
  - BLOOD PRESSURE DECREASED [None]
